FAERS Safety Report 8328205-8 (Version None)
Quarter: 2012Q2

REPORT INFORMATION
  Report Type: 
  Country: None (occurrence: None)
  Receive Date: 20120502
  Receipt Date: 20120420
  Transmission Date: 20120825
  Serious: Yes (Hospitalization)
  Sender: FDA-Public Use
  Company Number: FR-PFIZER INC-2012104520

PATIENT
  Age: 54 Year
  Sex: Female

DRUGS (4)
  1. IOMEPROL [Suspect]
     Indication: COMPUTERISED TOMOGRAM
     Dosage: 350 IU, SINGLE
     Route: 042
     Dates: start: 20120108, end: 20120108
  2. PANTOPRAZOLE [Suspect]
     Dosage: 40 MG, 2X/DAY
     Route: 048
     Dates: start: 20120108
  3. OXACILLIN [Suspect]
     Indication: STAPHYLOCOCCAL INFECTION
     Dosage: 1.5 G,1 IN 4 D
     Route: 042
     Dates: start: 20120107
  4. GENTAMICIN [Suspect]
     Indication: STAPHYLOCOCCAL INFECTION
     Dosage: UNK
     Route: 048
     Dates: start: 20120107, end: 20120109

REACTIONS (1)
  - RENAL FAILURE [None]
